FAERS Safety Report 16157622 (Version 2)
Quarter: 2019Q2

REPORT INFORMATION
  Report Type: Spontaneous
  Country: CN (occurrence: CN)
  Receive Date: 20190404
  Receipt Date: 20190424
  Transmission Date: 20190711
  Serious: Yes (Hospitalization)
  Sender: FDA-Public Use
  Company Number: CN-INCYTE CORPORATION-2019IN003191

PATIENT

DRUGS (2)
  1. JAKAVI [Suspect]
     Active Substance: RUXOLITINIB
     Dosage: UNK
  2. JAKAVI [Suspect]
     Active Substance: RUXOLITINIB
     Indication: BONE DISORDER
     Dosage: 4 DF, BID (8 TABLETS EVERYDAY)
     Route: 048
     Dates: start: 201708

REACTIONS (4)
  - Product use in unapproved indication [Unknown]
  - Ascites [Not Recovered/Not Resolved]
  - Gastrointestinal carcinoma [Not Recovered/Not Resolved]
  - Ovarian cancer [Not Recovered/Not Resolved]

NARRATIVE: CASE EVENT DATE: 201902
